FAERS Safety Report 16218186 (Version 1)
Quarter: 2019Q2

REPORT INFORMATION
  Report Type: Report from Study
  Country: IT (occurrence: IT)
  Receive Date: 20190419
  Receipt Date: 20190419
  Transmission Date: 20190711
  Serious: Yes (Death, Other)
  Sender: FDA-Public Use
  Company Number: IT-BRISTOL-MYERS SQUIBB COMPANY-BMS-2019-035880

PATIENT
  Age: 39 Year
  Sex: Male

DRUGS (11)
  1. SYNACTHEN                          /00137802/ [Suspect]
     Active Substance: COSYNTROPIN HEXAACETATE
     Indication: PAIN
     Dosage: 0.25 MILLIGRAM, QD
     Route: 030
     Dates: start: 20190126, end: 20190130
  2. CACIT                              /00944201/ [Concomitant]
     Active Substance: CALCIUM CARBONATE\CHOLECALCIFEROL
     Indication: PRODUCT USED FOR UNKNOWN INDICATION
     Route: 065
  3. DIBASE [Concomitant]
     Active Substance: CHOLECALCIFEROL
     Indication: PRODUCT USED FOR UNKNOWN INDICATION
     Route: 065
  4. PATROL [Concomitant]
     Active Substance: ACETAMINOPHEN\TRAMADOL HYDROCHLORIDE
     Indication: PRODUCT USED FOR UNKNOWN INDICATION
     Route: 065
  5. TRIAMCINOLONE ACETONIDE. [Suspect]
     Active Substance: TRIAMCINOLONE ACETONIDE
     Indication: ARTHRALGIA
     Dosage: 40 MILLIGRAM, BID
     Route: 030
     Dates: start: 20190115, end: 20190130
  6. GAVISCON ADVANCE                   /00926503/ [Concomitant]
     Active Substance: SODIUM ALGINATE
     Indication: PRODUCT USED FOR UNKNOWN INDICATION
     Route: 065
  7. CORTONE ACETATO [Suspect]
     Active Substance: CORTISONE ACETATE
     Indication: PAIN
     Dosage: 50 MILLIGRAM, QD
     Route: 048
     Dates: start: 20120101, end: 20190130
  8. ALGIX [Suspect]
     Active Substance: ETORICOXIB
     Indication: PAIN
     Dosage: 60 MILLIGRAM, QD
     Route: 048
     Dates: start: 20190121, end: 20190130
  9. BRUFEN                             /00109201/ [Suspect]
     Active Substance: IBUPROFEN
     Indication: PAIN
     Dosage: 1600 MILLIGRAM, QD
     Route: 048
     Dates: start: 20190126, end: 20190130
  10. LASIX [Concomitant]
     Active Substance: FUROSEMIDE
     Indication: PRODUCT USED FOR UNKNOWN INDICATION
     Route: 065
  11. SEQUACOR [Concomitant]
     Active Substance: BISOPROLOL
     Indication: PRODUCT USED FOR UNKNOWN INDICATION
     Route: 065

REACTIONS (5)
  - Cushing^s syndrome [Fatal]
  - Cardiac failure [Fatal]
  - Overdose [Unknown]
  - Urinary retention [Fatal]
  - Respiratory depression [Fatal]

NARRATIVE: CASE EVENT DATE: 20190130
